FAERS Safety Report 5582412-6 (Version None)
Quarter: 2007Q4

REPORT INFORMATION
  Report Type: 
  Country: None (occurrence: None)
  Receive Date: 20071130
  Receipt Date: 20070117
  Transmission Date: 20080405
  Serious: Yes (Disabling)
  Sender: FDA-Public Use
  Company Number: WAES 0701USA02318

PATIENT
  Age: 63 Year
  Sex: Male
  Weight: 76.2043 kg

DRUGS (11)
  1. FOSAMAX [Suspect]
     Indication: OSTEOPOROSIS
     Dosage: 70MG/WKL/PO
     Route: 048
     Dates: start: 20010101, end: 20060101
  2. LIPITOR [Concomitant]
  3. NEXIUM [Concomitant]
  4. PRILOSEC [Concomitant]
  5. REMERON [Concomitant]
  6. ASPIRIN [Concomitant]
  7. CALCIUM (UNSPECIFIED) (+)  VITAMIN [Concomitant]
  8. CHONDROITIN [Concomitant]
  9. GLUCOSAMINE [Concomitant]
  10. VITAMINS (UNSPECIFIED) [Concomitant]
  11. XANTHOPHYLL [Concomitant]

REACTIONS (1)
  - OSTEONECROSIS [None]
